FAERS Safety Report 9110499 (Version 1)
Quarter: 2013Q1

REPORT INFORMATION
  Report Type: Spontaneous
  Country: US (occurrence: US)
  Receive Date: 20130224
  Receipt Date: 20130224
  Transmission Date: 20140127
  Serious: No
  Sender: FDA-Public Use
  Company Number: US-ASTRAZENECA-2013SE00640

PATIENT
  Age: 59 Year
  Sex: Female
  Weight: 57.6 kg

DRUGS (9)
  1. METOPROLOL SUCCINATE [Suspect]
     Indication: HYPERTENSION
     Route: 048
     Dates: start: 201212
  2. METOPROLOL TARTRATE [Suspect]
     Indication: HYPERTENSION
     Route: 065
     Dates: start: 20130117
  3. BRILINTA [Suspect]
     Indication: CATHETERISATION CARDIAC
     Route: 048
     Dates: start: 201212
  4. BRILINTA [Suspect]
     Indication: STENT PLACEMENT
     Route: 048
     Dates: start: 201212
  5. PRAVASTATIN [Concomitant]
     Indication: BLOOD CHOLESTEROL
  6. FISH OIL [Concomitant]
     Indication: ILL-DEFINED DISORDER
  7. CALCIUM [Concomitant]
     Indication: OSTEOPOROSIS
  8. ASPIRIN [Concomitant]
     Indication: ANTIPLATELET THERAPY
  9. PREDNISONE [Concomitant]

REACTIONS (3)
  - Feeling abnormal [Unknown]
  - Hypertension [Unknown]
  - Sinus headache [Unknown]
